FAERS Safety Report 16743092 (Version 4)
Quarter: 2019Q4

REPORT INFORMATION
  Report Type: Spontaneous
  Country: CA (occurrence: CA)
  Receive Date: 20190827
  Receipt Date: 20191217
  Transmission Date: 20200122
  Serious: Yes (Death, Other)
  Sender: FDA-Public Use
  Company Number: CA-BEH-2019106084

PATIENT
  Age: 71 Year
  Sex: Female
  Weight: 82 kg

DRUGS (2)
  1. PRIVIGEN [Suspect]
     Active Substance: HUMAN IMMUNOGLOBULIN G
     Indication: CHRONIC INFLAMMATORY DEMYELINATING POLYRADICULONEUROPATHY
     Dosage: 200 MILLILITER, SINGLE (1 VIAL)
     Route: 042
     Dates: start: 20190803, end: 20190803
  2. PRIVIGEN [Suspect]
     Active Substance: HUMAN IMMUNOGLOBULIN G
     Dosage: 200 MILLILITER, SINGLE (1 VIAL)
     Route: 042
     Dates: start: 20190803, end: 20190803

REACTIONS (10)
  - Tachypnoea [Recovered/Resolved]
  - Respiratory distress [Recovered/Resolved]
  - Oxygen saturation decreased [Recovered/Resolved]
  - Peripheral sensory neuropathy [Fatal]
  - Breast neoplasm [Fatal]
  - Dyspnoea [Recovered/Resolved]
  - Chills [Recovered/Resolved]
  - Tachycardia [Recovered/Resolved]
  - Febrile nonhaemolytic transfusion reaction [Recovered/Resolved]
  - Respiratory failure [Fatal]

NARRATIVE: CASE EVENT DATE: 20190803
